FAERS Safety Report 10346921 (Version 1)
Quarter: 2014Q3

REPORT INFORMATION
  Report Type: Spontaneous
  Country: US (occurrence: None)
  Receive Date: 20140725
  Receipt Date: 20140725
  Transmission Date: 20150326
  Serious: Yes (Other)
  Sender: FDA-Public Use
  Company Number: None

PATIENT
  Age: 70 Year
  Sex: Male
  Weight: 66.68 kg

DRUGS (1)
  1. STAXYN [Suspect]
     Active Substance: VARDENAFIL HYDROCHLORIDE TRIHYDRATE
     Indication: ERECTILE DYSFUNCTION
     Dosage: 1 PILL AS NEEDED TAKEN BY MOUTH
     Dates: start: 20140101, end: 20140514

REACTIONS (7)
  - Candida infection [None]
  - Stomatitis [None]
  - Oral pain [None]
  - Product taste abnormal [None]
  - Urticaria [None]
  - Plicated tongue [None]
  - Tongue disorder [None]

NARRATIVE: CASE EVENT DATE: 20140429
